FAERS Safety Report 15214440 (Version 1)
Quarter: 2018Q3

REPORT INFORMATION
  Report Type: Spontaneous
  Country: US (occurrence: US)
  Receive Date: 20180702
  Receipt Date: 20180702
  Transmission Date: 20181010
  Serious: No
  Sender: FDA-Public Use
  Company Number: None

PATIENT
  Age: 58 Year
  Sex: Female

DRUGS (1)
  1. COSENTYX [Suspect]
     Active Substance: SECUKINUMAB
     Dates: start: 20180629, end: 20180702

REACTIONS (4)
  - Sinus congestion [None]
  - Cough [None]
  - Infection [None]
  - Nasopharyngitis [None]

NARRATIVE: CASE EVENT DATE: 20180702
